FAERS Safety Report 17813295 (Version 1)
Quarter: 2020Q2

REPORT INFORMATION
  Report Type: Spontaneous
  Country: ES (occurrence: ES)
  Receive Date: 20200521
  Receipt Date: 20200521
  Transmission Date: 20200714
  Serious: Yes (Other)
  Sender: FDA-Public Use
  Company Number: ES-MYLANLABS-2020M1049663

PATIENT
  Age: 55 Year
  Sex: Male
  Weight: 70 kg

DRUGS (6)
  1. FENTANYL. [Suspect]
     Active Substance: FENTANYL
     Indication: COVID-19 PNEUMONIA
     Dosage: UNK
     Dates: start: 202003, end: 202004
  2. HIDROXICLOROQUINA                  /00072601/ [Interacting]
     Active Substance: HYDROXYCHLOROQUINE
     Indication: COVID-19 PNEUMONIA
     Dosage: 200 MILLIGRAM, BID (200MG/12H)
     Route: 048
     Dates: start: 20200326, end: 20200407
  3. AZITROMICINA [Interacting]
     Active Substance: AZITHROMYCIN DIHYDRATE
     Indication: COVID-19 PNEUMONIA
     Dosage: UNK
     Route: 042
     Dates: start: 202003, end: 202004
  4. CEFTRIAXONA                        /00672201/ [Interacting]
     Active Substance: CEFTRIAXONE
     Indication: COVID-19 PNEUMONIA
     Dosage: UNK
     Route: 042
     Dates: start: 202003, end: 202004
  5. MIDAZOLAM. [Interacting]
     Active Substance: MIDAZOLAM
     Indication: COVID-19 PNEUMONIA
     Dosage: UNK
     Dates: start: 202003, end: 202004
  6. KALETRA [Interacting]
     Active Substance: LOPINAVIR\RITONAVIR
     Indication: COVID-19 PNEUMONIA
     Dosage: 5 MILLILITER, BID (5 ML/12H)
     Route: 048
     Dates: start: 20200326, end: 20200411

REACTIONS (2)
  - Tinnitus [Not Recovered/Not Resolved]
  - Drug interaction [Unknown]

NARRATIVE: CASE EVENT DATE: 20200421
